FAERS Safety Report 7132886-4 (Version None)
Quarter: 2010Q4

REPORT INFORMATION
  Report Type: 
  Country: None (occurrence: None)
  Receive Date: 20101202
  Receipt Date: 20101109
  Transmission Date: 20110411
  Serious: No
  Sender: FDA-Public Use
  Company Number: US-PFIZER INC-US-WYE-H17223410

PATIENT
  Sex: Female
  Weight: 74.9 kg

DRUGS (6)
  1. PREMARIN [Suspect]
     Indication: SEXUAL DYSFUNCTION
     Dosage: THREE TIMES A WEEK
     Route: 067
     Dates: start: 20100818, end: 20100820
  2. PREMARIN [Suspect]
     Indication: VULVOVAGINAL DRYNESS
     Route: 048
  3. VICODIN [Concomitant]
  4. ESTRADIOL [Concomitant]
  5. PROVERA [Concomitant]
  6. CORTISONE [Concomitant]

REACTIONS (6)
  - ABDOMINAL DISTENSION [None]
  - ACROCHORDON [None]
  - FEELING ABNORMAL [None]
  - LOCALISED OEDEMA [None]
  - SKIN HYPERPIGMENTATION [None]
  - VAGINAL SWELLING [None]
